FAERS Safety Report 5674333-5 (Version None)
Quarter: 2008Q1

REPORT INFORMATION
  Report Type: 
  Country: None (occurrence: None)
  Receive Date: 20080320
  Receipt Date: 20080320
  Transmission Date: 20080703
  Serious: Yes (Other)
  Sender: FDA-Public Use
  Company Number: None

PATIENT
  Age: 68 Year
  Sex: Female
  Weight: 63.5 kg

DRUGS (1)
  1. HEPARIN [Suspect]
     Indication: HAEMODIALYSIS
     Dosage: 1000 UNIT BOLUS HEMODIALYSIS
     Dates: start: 20070519, end: 20080201

REACTIONS (6)
  - ABDOMINAL PAIN UPPER [None]
  - BURNING SENSATION [None]
  - CHEST PAIN [None]
  - HYPOAESTHESIA ORAL [None]
  - HYPOTENSION [None]
  - ORAL DISCOMFORT [None]
